FAERS Safety Report 8210072 (Version 2)
Quarter: 2012Q4

REPORT INFORMATION
  Report Type: 
  Country: US (occurrence: None)
  Receive Date: 20111020
  Receipt Date: 20120830
  Transmission Date: 20130627
  Serious: Yes (Hospitalization)
  Sender: FDA-Public Use
  Company Number: AUR-APL-2011-05479

PATIENT
  Age: 48 Year
  Sex: Female

DRUGS (3)
  1. GLYBURIDE [Suspect]
     Indication: DRUG USE FOR UNKNOWN INDICATION
  2. VALIUM [Suspect]
     Indication: DRUG USE FOR UNKNOWN INDICATION
     Dosage: (2 DOSAGE FORMS),ORAL
     Route: 048
  3. CAFFEINE (CAFFEINE) [Concomitant]

REACTIONS (9)
  - Miosis [None]
  - Urinary incontinence [None]
  - Snoring [None]
  - Respiratory rate increased [None]
  - Toxicity to various agents [None]
  - Hyperhidrosis [None]
  - Hypoglycaemia [None]
  - Intentional drug misuse [None]
  - Unresponsive to stimuli [None]
